FAERS Safety Report 15402190 (Version 1)
Quarter: 2018Q3

REPORT INFORMATION
  Report Type: Spontaneous
  Country: SI (occurrence: SI)
  Receive Date: 20180919
  Receipt Date: 20180919
  Transmission Date: 20181010
  Serious: Yes (Other)
  Sender: FDA-Public Use
  Company Number: SI-PFIZER INC-2018375688

PATIENT
  Sex: Female

DRUGS (1)
  1. FRAGMIN [Suspect]
     Active Substance: DALTEPARIN SODIUM
     Indication: SURGERY
     Dosage: 5000 IU, (IN THE FIRST MORNING AFTER SURGERY)

REACTIONS (1)
  - Pulmonary embolism [Unknown]
